FAERS Safety Report 4797472-X (Version None)
Quarter: 2005Q4

REPORT INFORMATION
  Report Type: 
  Country: None (occurrence: None)
  Receive Date: 20051013
  Receipt Date: 20050920
  Transmission Date: 20060501
  Serious: Yes (Death)
  Sender: FDA-Public Use
  Company Number: PTWYE997421SEP05

PATIENT
  Age: 50 Year
  Sex: Male

DRUGS (5)
  1. ENBREL [Suspect]
     Indication: PSORIASIS
     Route: 058
     Dates: start: 20041201, end: 20050201
  2. ZYPREXA [Concomitant]
     Dates: start: 20041201, end: 20050201
  3. FLUOXETINE HYDROCHLORIDE [Concomitant]
     Dates: start: 20041201, end: 20050201
  4. ALFUZOSIN [Concomitant]
     Dates: start: 20041201, end: 20050201
  5. SERMION [Concomitant]
     Dates: start: 20041201, end: 20050201

REACTIONS (1)
  - DEATH [None]
